FAERS Safety Report 8051482-8 (Version None)
Quarter: 2012Q1

REPORT INFORMATION
  Report Type: 
  Country: None (occurrence: None)
  Receive Date: 20120117
  Receipt Date: 20120109
  Transmission Date: 20120608
  Serious: Yes (Hospitalization, Other)
  Sender: FDA-Public Use
  Company Number: US-ASTRAZENECA-2011SE51504

PATIENT
  Age: 76 Year
  Sex: Female

DRUGS (4)
  1. PRILOSEC [Suspect]
     Route: 048
  2. NEXIUM [Suspect]
     Route: 048
  3. PREVACID [Concomitant]
  4. PEPCID [Concomitant]

REACTIONS (10)
  - CATARACT [None]
  - ARTHRITIS [None]
  - COLITIS [None]
  - GASTRIC DISORDER [None]
  - THYROID DISORDER [None]
  - OSTEOARTHRITIS [None]
  - DRUG INEFFECTIVE [None]
  - DRUG DOSE OMISSION [None]
  - MALAISE [None]
  - MACULAR DEGENERATION [None]
